FAERS Safety Report 9372745 (Version 1)
Quarter: 2013Q2

REPORT INFORMATION
  Report Type: Spontaneous
  Country: US (occurrence: US)
  Receive Date: 20130627
  Receipt Date: 20130627
  Transmission Date: 20140414
  Serious: Yes (Other)
  Sender: FDA-Public Use
  Company Number: US-ASTRAZENECA-2013SE47427

PATIENT
  Age: 71 Year
  Sex: Male
  Weight: 83.9 kg

DRUGS (10)
  1. TENORMIN [Suspect]
     Indication: ARRHYTHMIA
     Dosage: 50 DAILY IN THE AM AND 25 MG IN THE EVENING AS NEEDED
     Route: 048
  2. AMOXICILLIN [Suspect]
     Indication: ANTIBIOTIC PROPHYLAXIS
     Dosage: 3 COURSES OF 500 MG THREE TIMES A DAY FOR 10 DAYS
     Route: 065
  3. AMOXICILLIN [Suspect]
     Indication: ANTIBIOTIC PROPHYLAXIS
     Route: 065
  4. BIAXIN [Suspect]
     Indication: BRONCHITIS
     Dosage: 500 MG TWO TIMES A DAY FOR 5 DAYS
     Route: 065
     Dates: start: 20130225
  5. ZITHROMAX [Suspect]
     Indication: BRONCHITIS
     Route: 065
  6. LEVOQUIN [Suspect]
     Indication: BRONCHITIS
     Route: 065
  7. OTHER ANTIBIOTICS [Suspect]
     Indication: BRONCHITIS
     Route: 065
  8. ASPIRIN [Concomitant]
     Indication: PROPHYLAXIS
  9. VIAGRA [Concomitant]
  10. NASOCORT [Concomitant]
     Indication: MULTIPLE ALLERGIES
     Dosage: 1 -2 SPRAYS, PRN

REACTIONS (13)
  - Myocardial infarction [Unknown]
  - Flatulence [Unknown]
  - Blood pressure fluctuation [Unknown]
  - Arrhythmia [Unknown]
  - Body height decreased [Unknown]
  - Bronchitis [Unknown]
  - Pyrexia [Recovered/Resolved]
  - Lower respiratory tract infection [Unknown]
  - Seasonal allergy [Unknown]
  - Abdominal discomfort [Unknown]
  - Dyspnoea [Unknown]
  - Abdominal discomfort [Unknown]
  - Intentional drug misuse [Unknown]
